FAERS Safety Report 9467770 (Version 1)
Quarter: 2013Q3

REPORT INFORMATION
  Report Type: Spontaneous
  Country: CA (occurrence: CA)
  Receive Date: 20130821
  Receipt Date: 20130821
  Transmission Date: 20140515
  Serious: Yes (Death, Hospitalization)
  Sender: FDA-Public Use
  Company Number: CA-B.I. PHARMACEUTICALS,INC./RIDGEFIELD-2013-CN-01454CN

PATIENT
  Age: 65 Year
  Sex: Male

DRUGS (4)
  1. PRADAXA [Suspect]
     Indication: ATRIAL FIBRILLATION
     Dosage: 300 MG
     Dates: start: 20111121
  2. PRADAXA [Suspect]
     Indication: PULMONARY EMBOLISM
  3. PRADAXA [Suspect]
     Indication: PARAGANGLION NEOPLASM MALIGNANT
  4. NAPROXEN [Concomitant]

REACTIONS (1)
  - Haemorrhage intracranial [Fatal]
